FAERS Safety Report 9802102 (Version 2)
Quarter: 2014Q1

REPORT INFORMATION
  Report Type: Spontaneous
  Country: FI (occurrence: FI)
  Receive Date: 20140107
  Receipt Date: 20140122
  Transmission Date: 20141002
  Serious: Yes (Hospitalization)
  Sender: FDA-Public Use
  Company Number: FI-FRI-1000052588

PATIENT
  Age: 36 Year
  Sex: Female

DRUGS (6)
  1. ARMOUR THYROID [Suspect]
     Indication: HYPOTHYROIDISM
     Dosage: GRADUALLY INCREASED TO 160 MG DAILY
     Route: 048
     Dates: start: 201308, end: 201310
  2. CITALOPRAM [Concomitant]
     Dosage: 20 MG
     Dates: start: 201308, end: 2013
  3. REBOXETINE MESILATE [Concomitant]
     Dosage: 4 MG
     Dates: start: 201310, end: 201311
  4. MELATONIN [Concomitant]
     Dosage: 6 MG
  5. HYDROCORTISON [Concomitant]
     Indication: ADRENAL INSUFFICIENCY
     Route: 048
  6. PRASTERON [Concomitant]
     Indication: ADRENAL INSUFFICIENCY

REACTIONS (3)
  - Hypothyroidism [Recovered/Resolved]
  - Hyperthyroidism [Recovered/Resolved]
  - Anxiety [Recovered/Resolved]
